FAERS Safety Report 15745699 (Version 1)
Quarter: 2020Q3

REPORT INFORMATION
  Report Type: Spontaneous
  Country: JP (occurrence: JP)
  Receive Date: 20181220
  Receipt Date: 20181220
  Transmission Date: 20201104
  Serious: Yes (Life-Threatening, Hospitalization, Other)
  Sender: FDA-Public Use
  Company Number: JP-MYLANLABS-2018M1094093

PATIENT
  Age: 35 Year
  Sex: Female
  Weight: 53 kg

DRUGS (12)
  1. SEVOFLURANE. [Suspect]
     Active Substance: SEVOFLURANE
     Indication: MAINTENANCE OF ANAESTHESIA
     Route: 065
  2. NOREPINEPHRINE. [Suspect]
     Active Substance: NOREPINEPHRINE
     Indication: ANAPHYLACTIC SHOCK
     Dosage: 0.1?0.2 MICROG/KG?1/MIN?1
     Route: 065
  3. FENTANYL. [Suspect]
     Active Substance: FENTANYL
     Indication: INDUCTION OF ANAESTHESIA
     Route: 008
  4. EPHEDRINE. [Suspect]
     Active Substance: EPHEDRINE
     Indication: ANAPHYLACTIC SHOCK
     Route: 065
  5. EPINEPHRINE. [Suspect]
     Active Substance: EPINEPHRINE
     Indication: ANAPHYLACTIC SHOCK
     Route: 030
  6. ROPIVACAINE. [Suspect]
     Active Substance: ROPIVACAINE HYDROCHLORIDE
     Indication: ANAESTHESIA
     Dosage: AT THE TIME OF THE SURGERY
     Route: 008
  7. PHENYLEPHRINE [Suspect]
     Active Substance: PHENYLEPHRINE HYDROCHLORIDE
     Indication: ANAPHYLACTIC SHOCK
     Route: 065
  8. SUGAMMADEX [Suspect]
     Active Substance: SUGAMMADEX
     Indication: DEPRESSED LEVEL OF CONSCIOUSNESS
     Route: 065
  9. ROCURONIUM [Suspect]
     Active Substance: ROCURONIUM BROMIDE
     Indication: INDUCTION OF ANAESTHESIA
     Route: 065
  10. DOPAMINE HYDROCHLORIDE. [Suspect]
     Active Substance: DOPAMINE HYDROCHLORIDE
     Indication: ANAPHYLACTIC SHOCK
     Dosage: 5?10 MICROG/KG?1/MIN?1
     Route: 065
  11. ROPIVACAINE. [Suspect]
     Active Substance: ROPIVACAINE HYDROCHLORIDE
     Indication: POSTOPERATIVE ANALGESIA
     Dosage: 4ML/HR?1; A CONTINUOUS INJECTION 50 MINUTES AFTER THE START OF SURGERY
     Route: 008
  12. PROPOFOL. [Suspect]
     Active Substance: PROPOFOL
     Indication: INDUCTION OF ANAESTHESIA
     Route: 008

REACTIONS (2)
  - Maternal exposure during pregnancy [Recovered/Resolved]
  - Foetal death [Not Recovered/Not Resolved]
